FAERS Safety Report 9125595 (Version 1)
Quarter: 2013Q1

REPORT INFORMATION
  Report Type: Spontaneous
  Country: FR (occurrence: FR)
  Receive Date: 20130121
  Receipt Date: 20130121
  Transmission Date: 20140127
  Serious: Yes (Hospitalization)
  Sender: FDA-Public Use
  Company Number: FR-VIIV HEALTHCARE LIMITED-B0858196A

PATIENT
  Age: 53 None
  Sex: Male

DRUGS (9)
  1. ZIAGEN [Suspect]
     Indication: HIV INFECTION
     Route: 048
     Dates: start: 20010723
  2. REYATAZ [Suspect]
     Indication: HIV INFECTION
     Route: 048
     Dates: start: 20051205
  3. VIDEX [Suspect]
     Indication: HIV INFECTION
     Route: 048
     Dates: start: 20060522
  4. NORVIR [Suspect]
     Indication: HIV INFECTION
     Dates: start: 20051205
  5. TAHOR [Concomitant]
     Dosage: 80MG PER DAY
  6. KARDEGIC [Concomitant]
     Dosage: 75MG PER DAY
  7. EFFIENT [Concomitant]
     Dosage: 10MG PER DAY
  8. ATENOLOL [Concomitant]
     Dosage: 50MG SEE DOSAGE TEXT
  9. RAMIPRIL [Concomitant]
     Dosage: 2.5MG IN THE MORNING

REACTIONS (2)
  - Myocardial infarction [Recovered/Resolved with Sequelae]
  - Myocardial infarction [Recovered/Resolved with Sequelae]
